FAERS Safety Report 7355650-X (Version None)
Quarter: 2011Q1

REPORT INFORMATION
  Report Type: 
  Country: None (occurrence: None)
  Receive Date: 20110316
  Receipt Date: 20110217
  Transmission Date: 20110831
  Serious: No
  Sender: FDA-Public Use
  Company Number: US-B.I. PHARMACEUTICALS,INC./RIDGEFIELD-2011-BP-06036BP

PATIENT
  Sex: Male

DRUGS (8)
  1. PREDNISONE [Concomitant]
     Indication: ATRIAL FIBRILLATION
     Dosage: 5 MG
  2. FORMOTERAL [Concomitant]
     Indication: DYSPNOEA
     Dosage: 12 MG
  3. LISINOPRIL [Concomitant]
     Indication: HYPERTENSION
     Dosage: 2.5 MG
  4. LASIX [Concomitant]
     Indication: FLUID RETENTION
     Dosage: 20 MG
  5. ALBUTEROL [Concomitant]
     Indication: DYSPNOEA
  6. ZOCOR [Concomitant]
     Indication: BLOOD CHOLESTEROL INCREASED
     Dosage: 20 MG
  7. ASMANEX TWISTHALER [Concomitant]
     Indication: DYSPNOEA
  8. PRADAXA [Suspect]
     Indication: ATRIAL FIBRILLATION
     Dosage: 300 MG
     Route: 048
     Dates: start: 20110101

REACTIONS (2)
  - RASH [None]
  - OCULAR HYPERAEMIA [None]
